FAERS Safety Report 4915966-0 (Version None)
Quarter: 2006Q1

REPORT INFORMATION
  Report Type: 
  Country: None (occurrence: None)
  Receive Date: 20060214
  Receipt Date: 20060124
  Transmission Date: 20060701
  Serious: No
  Sender: FDA-Public Use
  Company Number: US_0509122508

PATIENT
  Age: 46 Year
  Sex: Male
  Weight: 86.2 kg

DRUGS (3)
  1. ZYPREXA (OLANZAPNE) [Suspect]
     Dosage: 10 MG, UNK, ORAL
     Route: 048
     Dates: start: 20000101, end: 20020101
  2. CELEXA [Concomitant]
  3. PRILOSEC [Concomitant]

REACTIONS (10)
  - ANXIETY [None]
  - BLOOD CHOLESTEROL INCREASED [None]
  - BLOOD GLUCOSE INCREASED [None]
  - BLOOD TRIGLYCERIDES INCREASED [None]
  - DIABETES MELLITUS [None]
  - HAEMATOCHEZIA [None]
  - HYPERTENSION [None]
  - HYPOGLYCAEMIA [None]
  - LOW DENSITY LIPOPROTEIN INCREASED [None]
  - VISION BLURRED [None]
